FAERS Safety Report 5315406-6 (Version None)
Quarter: 2007Q2

REPORT INFORMATION
  Report Type: 
  Country: None (occurrence: None)
  Receive Date: 20070503
  Receipt Date: 20070424
  Transmission Date: 20071010
  Serious: Yes (Other)
  Sender: FDA-Public Use
  Company Number: PHEH2007US05527

PATIENT
  Age: 48 Year
  Sex: Female

DRUGS (6)
  1. ZELNORM [Suspect]
     Indication: MUSCLE DISORDER
     Dosage: UNK, UNK
     Route: 048
     Dates: start: 20051213, end: 20051227
  2. PERCOCET [Concomitant]
     Indication: PAIN
     Route: 048
     Dates: start: 19960101
  3. PAXIL [Concomitant]
     Indication: DEPRESSION
     Dosage: 12.5-37.5 MG, UNK
     Route: 048
     Dates: start: 20040101, end: 20070101
  4. XANAX [Concomitant]
     Indication: DEPRESSION
     Dosage: UNK, QD
     Route: 048
  5. LYRICA [Concomitant]
     Indication: FIBROMYALGIA
     Dosage: 150 MG, UNK
     Route: 048
  6. LISINOPRIL [Concomitant]
     Indication: HYPERTENSION
     Dosage: UNK, UNK
     Route: 048

REACTIONS (11)
  - BURNING SENSATION [None]
  - DISEASE RECURRENCE [None]
  - FIBROMYALGIA [None]
  - GAIT DISTURBANCE [None]
  - GENERAL PHYSICAL HEALTH DETERIORATION [None]
  - HYPERTENSION [None]
  - INJURY [None]
  - MUSCLE SPASMS [None]
  - PAIN [None]
  - PAIN IN EXTREMITY [None]
  - SPINAL OSTEOARTHRITIS [None]
